FAERS Safety Report 7213478-5 (Version None)
Quarter: 2011Q1

REPORT INFORMATION
  Report Type: 
  Country: None (occurrence: None)
  Receive Date: 20110106
  Receipt Date: 20101223
  Transmission Date: 20110831
  Serious: Yes (Other)
  Sender: FDA-Public Use
  Company Number: PHHY2010IT88097

PATIENT
  Age: 37 Year
  Sex: Female

DRUGS (1)
  1. CYCLOSPORINE [Suspect]
     Indication: DERMATITIS CONTACT
     Dosage: 250 MG DAILY

REACTIONS (3)
  - SKIN EXFOLIATION [None]
  - SKIN LESION [None]
  - ERYTHEMA [None]
